FAERS Safety Report 25134911 (Version 1)
Quarter: 2025Q1

REPORT INFORMATION
  Report Type: Spontaneous
  Country: DE (occurrence: DE)
  Receive Date: 20250328
  Receipt Date: 20250328
  Transmission Date: 20250409
  Serious: Yes (Death, Hospitalization, Other)
  Sender: STRIDES
  Company Number: DE-STRIDES ARCOLAB LIMITED-2025SP003935

PATIENT
  Age: 74 Year
  Sex: Female

DRUGS (6)
  1. ETOPOSIDE [Suspect]
     Active Substance: ETOPOSIDE
     Indication: Bronchial carcinoma
     Route: 065
     Dates: start: 2022
  2. ETOPOSIDE [Suspect]
     Active Substance: ETOPOSIDE
     Route: 065
  3. CARBOPLATIN [Suspect]
     Active Substance: CARBOPLATIN
     Indication: Bronchial carcinoma
     Route: 065
     Dates: start: 2022
  4. CARBOPLATIN [Suspect]
     Active Substance: CARBOPLATIN
     Route: 065
  5. ATEZOLIZUMAB [Suspect]
     Active Substance: ATEZOLIZUMAB
     Indication: Bronchial carcinoma
     Route: 065
     Dates: start: 202206
  6. HUMAN IMMUNOGLOBULIN G [Suspect]
     Active Substance: HUMAN IMMUNOGLOBULIN G
     Indication: Bronchial carcinoma
     Route: 042

REACTIONS (3)
  - Drug ineffective [Fatal]
  - Paraneoplastic neurological syndrome [Unknown]
  - Anti-neuronal antibody [Unknown]

NARRATIVE: CASE EVENT DATE: 20220601
